FAERS Safety Report 15921146 (Version 1)
Quarter: 2019Q1

REPORT INFORMATION
  Report Type: Spontaneous
  Country: IR (occurrence: IR)
  Receive Date: 20190205
  Receipt Date: 20190205
  Transmission Date: 20190417
  Serious: Yes (Other)
  Sender: FDA-Public Use
  Company Number: IR-MYLANLABS-2019M1008398

PATIENT
  Age: 9 Year
  Sex: Male

DRUGS (4)
  1. TRIMETHOPRIM SULFAMETHOXAZOLE [Concomitant]
     Active Substance: SULFAMETHOXAZOLE\TRIMETHOPRIM
     Indication: PROPHYLAXIS
     Dosage: UNK
     Route: 065
  2. ITRACONAZOLE. [Suspect]
     Active Substance: ITRACONAZOLE
     Indication: OSTEOMYELITIS FUNGAL
     Route: 065
  3. AMPHOTERICIN B DEOXYCHOLATE [Suspect]
     Active Substance: AMPHOTERICIN B
     Indication: OSTEOMYELITIS FUNGAL
     Route: 065
  4. INTERFERON GAMMA NOS [Concomitant]
     Active Substance: INTERFERON GAMMA
     Indication: OSTEOMYELITIS FUNGAL
     Dosage: 50 MICROGRAM/KILOGRAM
     Route: 065

REACTIONS (1)
  - Treatment failure [Unknown]
